FAERS Safety Report 9144634 (Version 1)
Quarter: 2013Q1

REPORT INFORMATION
  Report Type: Spontaneous
  Country: US (occurrence: US)
  Receive Date: 20130306
  Receipt Date: 20130306
  Transmission Date: 20140127
  Serious: Yes (Hospitalization)
  Sender: FDA-Public Use
  Company Number: US-ROXANE LABORATORIES, INC.-2013-RO-00327RO

PATIENT
  Age: 76 Year
  Sex: Male

DRUGS (3)
  1. CLOPIDOGREL [Suspect]
  2. SIMVASTATIN [Suspect]
  3. TAMSULOSIN [Suspect]

REACTIONS (1)
  - Cutaneous vasculitis [Recovered/Resolved]
